FAERS Safety Report 6593406-6 (Version None)
Quarter: 2010Q1

REPORT INFORMATION
  Report Type: 
  Country: None (occurrence: None)
  Receive Date: 20100222
  Receipt Date: 20090401
  Transmission Date: 20100710
  Serious: No
  Sender: FDA-Public Use
  Company Number: US-BRISTOL-MYERS SQUIBB COMPANY-14572226

PATIENT
  Sex: Male

DRUGS (4)
  1. ORENCIA [Suspect]
  2. METHOTREXATE [Concomitant]
     Indication: ANKYLOSING SPONDYLITIS
  3. MOBIC [Concomitant]
     Indication: ANKYLOSING SPONDYLITIS
  4. METHYLPREDNISOLONE ACETATE [Concomitant]
     Indication: ANKYLOSING SPONDYLITIS

REACTIONS (1)
  - DRUG EFFECT DECREASED [None]
